FAERS Safety Report 11260893 (Version 2)
Quarter: 2015Q3

REPORT INFORMATION
  Report Type: Report from Study
  Country: US (occurrence: US)
  Receive Date: 20150710
  Receipt Date: 20150710
  Transmission Date: 20151125
  Serious: Yes (Hospitalization)
  Sender: FDA-Public Use
  Company Number: US-ABBVIE-15P-163-1417086-00

PATIENT
  Age: 56 Year
  Sex: Male

DRUGS (6)
  1. TETANUS TOXOID [Concomitant]
     Active Substance: CLOSTRIDIUM TETANI TOXOID ANTIGEN (FORMALDEHYDE INACTIVATED)
     Route: 030
     Dates: start: 20150530, end: 20150530
  2. LIDOCAINE. [Concomitant]
     Active Substance: LIDOCAINE
     Indication: WOUND
     Route: 058
  3. LIDOCAINE. [Concomitant]
     Active Substance: LIDOCAINE
     Dosage: INTRADERMAL
     Dates: start: 20150530, end: 20150530
  4. TETANUS TOXOID [Concomitant]
     Active Substance: CLOSTRIDIUM TETANI TOXOID ANTIGEN (FORMALDEHYDE INACTIVATED)
     Indication: WOUND
     Route: 050
     Dates: start: 20150530, end: 20150530
  5. HUMIRA [Suspect]
     Active Substance: ADALIMUMAB
     Indication: NAIL PSORIASIS
     Route: 058
     Dates: start: 20140922, end: 20150324
  6. HUMIRA [Suspect]
     Active Substance: ADALIMUMAB
     Route: 058
     Dates: start: 20150331

REACTIONS (1)
  - Tenosynovitis [Recovered/Resolved]

NARRATIVE: CASE EVENT DATE: 20150604
